FAERS Safety Report 16537429 (Version 1)
Quarter: 2019Q3

REPORT INFORMATION
  Report Type: Spontaneous
  Country: US (occurrence: US)
  Receive Date: 20190707
  Receipt Date: 20190707
  Transmission Date: 20191004
  Serious: Yes (Other)
  Sender: FDA-Public Use
  Company Number: US-BAXTER-2019BAX012990

PATIENT
  Age: 59 Year
  Sex: Male

DRUGS (3)
  1. BUPIVACAINE HYDROCHLORIDE IN 8.25% DEXTROSE INJECTION USP [Suspect]
     Active Substance: BUPIVACAINE HYDROCHLORIDE
     Indication: NERVE BLOCK
     Dosage: 10ML ALIQUOTS OF 0.5% BUPIVACAINE, MIXED WITH 1.0% EPINEPHRINE AND 1.0% LIDOCAINE.
     Route: 065
  2. EPINEPHRINE. [Suspect]
     Active Substance: EPINEPHRINE
     Indication: NERVE BLOCK
     Dosage: 10ML ALIQUOTS OF 0.5% BUPIVACAINE, MIXED WITH 1.0% EPINEPHRINE AND 1.0% LIDOCAINE.
     Route: 065
  3. LIDOCAINE. [Suspect]
     Active Substance: LIDOCAINE
     Indication: NERVE BLOCK
     Dosage: 10ML ALIQUOTS OF 0.5% BUPIVACAINE, MIXED WITH 1.0% EPINEPHRINE AND 1.0% LIDOCAINE.
     Route: 065

REACTIONS (4)
  - Oedema [Unknown]
  - Toxicity to various agents [Recovered/Resolved]
  - Anal incontinence [Recovered/Resolved]
  - Anal sphincter atony [Unknown]
